FAERS Safety Report 18030090 (Version 2)
Quarter: 2021Q3

REPORT INFORMATION
  Report Type: Spontaneous
  Country: US (occurrence: US)
  Receive Date: 20200716
  Receipt Date: 20210706
  Transmission Date: 20211014
  Serious: Yes (Other)
  Sender: FDA-Public Use
  Company Number: US-GLAXOSMITHKLINE-US2020132367

PATIENT
  Sex: Male

DRUGS (14)
  1. RANITIDINE. [Suspect]
     Active Substance: RANITIDINE
     Indication: OROPHARYNGEAL PAIN
  2. RANITIDINE. [Suspect]
     Active Substance: RANITIDINE
     Dosage: UNK
     Route: 065
  3. ZANTAC [Suspect]
     Active Substance: RANITIDINE HYDROCHLORIDE
     Dosage: UNK
     Route: 065
  4. RANITIDINE. [Suspect]
     Active Substance: RANITIDINE
     Indication: OROPHARYNGEAL PAIN
  5. RANITIDINE. [Suspect]
     Active Substance: RANITIDINE
     Indication: FLATULENCE
     Dosage: UNK, QD
     Route: 065
     Dates: start: 201501, end: 201801
  6. ZANTAC [Suspect]
     Active Substance: RANITIDINE HYDROCHLORIDE
     Indication: FLATULENCE
     Dosage: UNK, QD
     Route: 065
     Dates: start: 201501, end: 201801
  7. ZANTAC [Suspect]
     Active Substance: RANITIDINE HYDROCHLORIDE
     Indication: ABDOMINAL PAIN UPPER
  8. ZANTAC [Suspect]
     Active Substance: RANITIDINE HYDROCHLORIDE
     Indication: ABDOMINAL PAIN UPPER
  9. ZANTAC [Suspect]
     Active Substance: RANITIDINE HYDROCHLORIDE
     Indication: OROPHARYNGEAL PAIN
  10. RANITIDINE. [Suspect]
     Active Substance: RANITIDINE
     Indication: ABDOMINAL PAIN UPPER
  11. ZANTAC [Suspect]
     Active Substance: RANITIDINE HYDROCHLORIDE
     Indication: OROPHARYNGEAL PAIN
  12. ZANTAC [Suspect]
     Active Substance: RANITIDINE HYDROCHLORIDE
     Indication: FLATULENCE
     Dosage: UNK, QD
     Route: 065
     Dates: start: 201501, end: 201801
  13. RANITIDINE. [Suspect]
     Active Substance: RANITIDINE
     Indication: FLATULENCE
     Dosage: UNK, QD
     Route: 065
     Dates: start: 201501, end: 201801
  14. RANITIDINE. [Suspect]
     Active Substance: RANITIDINE
     Indication: ABDOMINAL PAIN UPPER

REACTIONS (1)
  - Oesophageal carcinoma [Unknown]
